FAERS Safety Report 16768598 (Version 1)
Quarter: 2019Q3

REPORT INFORMATION
  Report Type: Spontaneous
  Country: US (occurrence: US)
  Receive Date: 20190715
  Receipt Date: 20190715
  Transmission Date: 20191005
  Serious: No
  Sender: FDA-Public Use
  Company Number: None

PATIENT
  Age: 64 Year
  Sex: Male

DRUGS (1)
  1. AFINITOR [Suspect]
     Active Substance: EVEROLIMUS
     Indication: NEOPLASM MALIGNANT
     Route: 048
     Dates: start: 20190210, end: 20190626

REACTIONS (4)
  - Blister [None]
  - Arthralgia [None]
  - Medical device pain [None]
  - Bone pain [None]

NARRATIVE: CASE EVENT DATE: 20190210
